FAERS Safety Report 5661674-0 (Version None)
Quarter: 2008Q1

REPORT INFORMATION
  Report Type: 
  Country: None (occurrence: None)
  Receive Date: 20080312
  Receipt Date: 20080307
  Transmission Date: 20080703
  Serious: Yes (Other)
  Sender: FDA-Public Use
  Company Number: CA-BRISTOL-MYERS SQUIBB COMPANY-13944384

PATIENT
  Age: 52 Year
  Sex: Female

DRUGS (3)
  1. ORENCIA [Suspect]
     Indication: RHEUMATOID ARTHRITIS
     Dosage: INFUSIONS:14;22MAR07,5APR,19APR,16MAY,21JUN,11JUL,8AUG,5SEP,3OCT,31OCT,28NOV,31DEC07,23JAN,20FEB08
     Route: 042
     Dates: start: 20070322
  2. PREDNISONE [Concomitant]
  3. METHOTREXATE [Concomitant]
     Dosage: 1 DOSAGE FORM = 1 TABS; TAKEN ON THURSDAYS.

REACTIONS (7)
  - ABDOMINAL PAIN [None]
  - COUGH [None]
  - MYALGIA [None]
  - PYREXIA [None]
  - RHINORRHOEA [None]
  - WHIPPLE'S DISEASE [None]
  - WHITE BLOOD CELL COUNT INCREASED [None]
